FAERS Safety Report 17259295 (Version 1)
Quarter: 2020Q1

REPORT INFORMATION
  Report Type: Spontaneous
  Country: US (occurrence: US)
  Receive Date: 20200110
  Receipt Date: 20200110
  Transmission Date: 20200409
  Serious: Yes (Hospitalization)
  Sender: FDA-Public Use
  Company Number: US-SA-2020SA005973

PATIENT
  Age: 63 Year
  Sex: Male

DRUGS (4)
  1. AUBAGIO [Suspect]
     Active Substance: TERIFLUNOMIDE
     Indication: MULTIPLE SCLEROSIS
     Dosage: 14 MG, QD
     Route: 048
     Dates: start: 20180721
  2. AUBAGIO [Suspect]
     Active Substance: TERIFLUNOMIDE
     Indication: ULCERATIVE KERATITIS
  3. AUBAGIO [Suspect]
     Active Substance: TERIFLUNOMIDE
     Indication: RHEUMATOID ARTHRITIS
  4. AUBAGIO [Suspect]
     Active Substance: TERIFLUNOMIDE
     Indication: TESTICULAR FAILURE

REACTIONS (2)
  - Hospitalisation [Unknown]
  - Product use in unapproved indication [Unknown]

NARRATIVE: CASE EVENT DATE: 20180721
